FAERS Safety Report 8840401 (Version 2)
Quarter: 2015Q2

REPORT INFORMATION
  Report Type: Report from Study
  Country: US (occurrence: US)
  Receive Date: 20121015
  Receipt Date: 20150420
  Transmission Date: 20150821
  Serious: Yes (Other)
  Sender: FDA-Public Use
  Company Number: US-ROCHE-1139746

PATIENT
  Age: 6 Year
  Sex: Male

DRUGS (6)
  1. NUTROPIN AQ [Suspect]
     Active Substance: SOMATROPIN
     Indication: GROWTH HORMONE DEFICIENCY
  2. PROTROPIN [Suspect]
     Active Substance: SOMATREM
     Indication: FACIODIGITOGENITAL DYSPLASIA
  3. NUTROPIN AQ [Suspect]
     Active Substance: SOMATROPIN
     Indication: FACIODIGITOGENITAL DYSPLASIA
  4. PROTROPIN [Suspect]
     Active Substance: SOMATREM
     Indication: DWARFISM
     Route: 065
     Dates: start: 199512
  5. PROTROPIN [Suspect]
     Active Substance: SOMATREM
     Indication: GROWTH HORMONE DEFICIENCY
  6. NUTROPIN AQ [Suspect]
     Active Substance: SOMATROPIN
     Indication: DWARFISM
     Route: 058
     Dates: start: 1998

REACTIONS (1)
  - Seizure [Unknown]

NARRATIVE: CASE EVENT DATE: 199803
